FAERS Safety Report 5780513-0 (Version None)
Quarter: 2008Q2

REPORT INFORMATION
  Report Type: 
  Country: None (occurrence: None)
  Receive Date: 20080620
  Receipt Date: 20080615
  Transmission Date: 20081010
  Serious: Yes (Other)
  Sender: FDA-Public Use
  Company Number: BR-AVENTIS-200815686GDDC

PATIENT
  Age: 14 Month
  Sex: Female
  Weight: 10 kg

DRUGS (2)
  1. FLAGYL [Suspect]
     Route: 048
     Dates: start: 20080613, end: 20080614
  2. FLAGYL [Suspect]
     Route: 048
     Dates: start: 20080615

REACTIONS (2)
  - MEDICATION ERROR [None]
  - PANIC ATTACK [None]
